FAERS Safety Report 15811071 (Version 2)
Quarter: 2019Q1

REPORT INFORMATION
  Report Type: Report from Study
  Country: TR (occurrence: TR)
  Receive Date: 20190111
  Receipt Date: 20190114
  Transmission Date: 20190417
  Serious: Yes (Other)
  Sender: FDA-Public Use
  Company Number: TR-SUN PHARMACEUTICAL INDUSTRIES LTD-2018RR-195820

PATIENT

DRUGS (5)
  1. ESTRADIOL BENZOATE/PROGESTERONE [Suspect]
     Active Substance: ESTRADIOL BENZOATE\PROGESTERONE
     Indication: MENSTRUATION IRREGULAR
     Dosage: 2.5/12.5; IN WEEKS 7-8 AFTER LAST MENSTRUAL PERIOD, ONCE
     Route: 064
  2. LORATADINE. [Suspect]
     Active Substance: LORATADINE
     Indication: PNEUMONIA
     Dosage: 10 MILLIGRAM, DAILY, ON WEEK 7-8
     Route: 064
  3. AMOXICILLIN. [Suspect]
     Active Substance: AMOXICILLIN
     Indication: PNEUMONIA
     Dosage: 2000 MILLIGRAM, DAILY, ON WEEKS 7-8
     Route: 064
  4. NAPROXEN. [Suspect]
     Active Substance: NAPROXEN
     Indication: PNEUMONIA
     Dosage: 550 MILLIGRAM, DAILY, ON WEEKS 7-8
     Route: 064
  5. ALPRAZOLAM. [Suspect]
     Active Substance: ALPRAZOLAM
     Indication: ANXIETY
     Dosage: 0.5 MILLIGRAM, DAILY, ON WEEK 7-11
     Route: 064

REACTIONS (2)
  - Premature baby [Unknown]
  - Foetal exposure during pregnancy [Unknown]
